FAERS Safety Report 5358590-0 (Version None)
Quarter: 2007Q2

REPORT INFORMATION
  Report Type: 
  Country: None (occurrence: None)
  Receive Date: 20070615
  Receipt Date: 20070606
  Transmission Date: 20071010
  Serious: Yes (Hospitalization, Other)
  Sender: FDA-Public Use
  Company Number: US-JNJFOC-20070500727

PATIENT
  Sex: Male
  Weight: 81.65 kg

DRUGS (8)
  1. LEVAQUIN [Suspect]
     Indication: PROSTATITIS
     Dosage: STARTED 2 DAYS AGO
     Route: 048
  2. VYTORIN [Concomitant]
     Route: 048
  3. PHENERGAN HCL [Concomitant]
     Indication: VOMITING
     Route: 048
  4. PHENERGAN HCL [Concomitant]
     Indication: NAUSEA
     Route: 048
  5. CATAFLAM [Concomitant]
     Indication: PAIN
     Route: 065
  6. LORTAB [Concomitant]
     Indication: PAIN
     Route: 065
  7. ROCEPHIN [Concomitant]
     Route: 030
  8. CIPRO [Concomitant]
     Route: 048

REACTIONS (4)
  - HEPATITIS [None]
  - MULTI-ORGAN FAILURE [None]
  - PROCTOCOLITIS [None]
  - THROMBOCYTOPENIA [None]
